FAERS Safety Report 13093858 (Version 1)
Quarter: 2017Q1

REPORT INFORMATION
  Report Type: Spontaneous
  Country: US (occurrence: US)
  Receive Date: 20170106
  Receipt Date: 20170106
  Transmission Date: 20170428
  Serious: No
  Sender: FDA-Public Use
  Company Number: PHEH2017US000564

PATIENT
  Sex: Male

DRUGS (1)
  1. COSENTYX [Suspect]
     Active Substance: SECUKINUMAB
     Indication: PRODUCT USED FOR UNKNOWN INDICATION
     Dosage: 300 MG (TWO 150 INJECTION PENS)
     Route: 042

REACTIONS (4)
  - Incorrect route of drug administration [Unknown]
  - Needle issue [Unknown]
  - Incorrect dose administered [Unknown]
  - Device malfunction [Unknown]
